FAERS Safety Report 6328717-2 (Version None)
Quarter: 2009Q3

REPORT INFORMATION
  Report Type: 
  Country: None (occurrence: None)
  Receive Date: 20090825
  Receipt Date: 20090825
  Transmission Date: 20100115
  Serious: Yes (Other)
  Sender: FDA-Public Use
  Company Number: None

PATIENT
  Age: 60 Year
  Sex: Female
  Weight: 87.0906 kg

DRUGS (1)
  1. ALLI [Suspect]
     Indication: WEIGHT CONTROL
     Dosage: 3X
     Dates: start: 20070101, end: 20081130

REACTIONS (4)
  - ABDOMINAL PAIN UPPER [None]
  - FAECES DISCOLOURED [None]
  - FREQUENT BOWEL MOVEMENTS [None]
  - GASTROINTESTINAL MOTILITY DISORDER [None]
